FAERS Safety Report 14250026 (Version 2)
Quarter: 2018Q1

REPORT INFORMATION
  Report Type: Spontaneous
  Country: BR (occurrence: BR)
  Receive Date: 20171205
  Receipt Date: 20180228
  Transmission Date: 20180508
  Serious: Yes (Death, Other)
  Sender: FDA-Public Use
  Company Number: BR-AMGEN-BRASP2017180507

PATIENT
  Age: 56 Year
  Sex: Male

DRUGS (1)
  1. ENBREL [Suspect]
     Active Substance: ETANERCEPT
     Indication: PRODUCT USED FOR UNKNOWN INDICATION
     Dosage: UNK
     Route: 065
     Dates: start: 201608, end: 201609

REACTIONS (14)
  - Blood pressure abnormal [Unknown]
  - Arthralgia [Recovered/Resolved]
  - Condition aggravated [Unknown]
  - Pain [Recovering/Resolving]
  - Weight decreased [Unknown]
  - Pyrexia [Unknown]
  - Diabetes mellitus [Unknown]
  - Condition aggravated [Recovering/Resolving]
  - Fall [Unknown]
  - Abdominal pain upper [Recovered/Resolved]
  - Infarction [Fatal]
  - Feeling abnormal [Unknown]
  - Vomiting [Unknown]
  - Chest pain [Recovered/Resolved]

NARRATIVE: CASE EVENT DATE: 201704
